FAERS Safety Report 11938270 (Version 1)
Quarter: 2016Q1

REPORT INFORMATION
  Report Type: Spontaneous
  Country: US (occurrence: None)
  Receive Date: 20160121
  Receipt Date: 20160121
  Transmission Date: 20160526
  Serious: No
  Sender: FDA-Public Use
  Company Number: None

PATIENT
  Age: 74 Year
  Sex: Male
  Weight: 111.13 kg

DRUGS (1)
  1. LATANOPROST OPTH SLN. 0.005% ALCON LABORATORIES, INC . [Suspect]
     Active Substance: LATANOPROST
     Indication: GLAUCOMA
     Route: 047
     Dates: start: 20160117

REACTIONS (1)
  - Eye irritation [None]

NARRATIVE: CASE EVENT DATE: 20160117
